FAERS Safety Report 13820258 (Version 1)
Quarter: 2017Q3

REPORT INFORMATION
  Report Type: Report from Study
  Country: US (occurrence: US)
  Receive Date: 20170801
  Receipt Date: 20170801
  Transmission Date: 20171127
  Serious: No
  Sender: FDA-Public Use
  Company Number: PHEH2015US007495

PATIENT
  Age: 16 Year
  Sex: Female

DRUGS (2)
  1. ILARIS [Suspect]
     Active Substance: CANAKINUMAB
     Indication: VIRAL UPPER RESPIRATORY TRACT INFECTION
     Dosage: 150 MG, EVERY 8 WEEKS
     Route: 058
     Dates: start: 20150410
  2. ILARIS [Suspect]
     Active Substance: CANAKINUMAB
     Indication: INFLAMMATION

REACTIONS (3)
  - Inappropriate schedule of drug administration [Unknown]
  - Incorrect dose administered [Unknown]
  - Medication error [Unknown]

NARRATIVE: CASE EVENT DATE: 20150410
